FAERS Safety Report 5880897-9 (Version None)
Quarter: 2008Q3

REPORT INFORMATION
  Report Type: 
  Country: None (occurrence: None)
  Receive Date: 20080912
  Receipt Date: 20080612
  Transmission Date: 20090109
  Serious: No
  Sender: FDA-Public Use
  Company Number: US-ABBOTT-08P-163-0457141-00

PATIENT
  Sex: Male
  Weight: 70.37 kg

DRUGS (3)
  1. HUMIRA [Suspect]
     Indication: CROHN'S DISEASE
     Dosage: 4 SHOTS INITIALLY
     Route: 058
  2. HUMIRA [Suspect]
     Dosage: 2 SHOTS
     Route: 058
  3. HUMIRA [Suspect]
     Route: 058

REACTIONS (1)
  - PROCEDURAL COMPLICATION [None]
